FAERS Safety Report 10032555 (Version 2)
Quarter: 2014Q3

REPORT INFORMATION
  Report Type: Spontaneous
  Country: US (occurrence: US)
  Receive Date: 20140324
  Receipt Date: 20140714
  Transmission Date: 20150326
  Serious: Yes (Other)
  Sender: FDA-Public Use
  Company Number: US-BAYER-2014-042009

PATIENT
  Age: 31 Year
  Sex: Female

DRUGS (2)
  1. MIRENA [Suspect]
     Active Substance: LEVONORGESTREL
     Indication: GENITAL HAEMORRHAGE
  2. MIRENA [Suspect]
     Active Substance: LEVONORGESTREL
     Indication: CONTRACEPTION
     Dosage: 20 MCG/24HR, CONT
     Route: 015
     Dates: start: 20130405

REACTIONS (6)
  - Drug ineffective [None]
  - Device dislocation [Not Recovered/Not Resolved]
  - Uterine leiomyoma [None]
  - Abdominal pain lower [None]
  - Pregnancy with contraceptive device [Not Recovered/Not Resolved]
  - Menstrual disorder [None]
